FAERS Safety Report 8353755-8 (Version None)
Quarter: 2012Q2

REPORT INFORMATION
  Report Type: 
  Country: None (occurrence: None)
  Receive Date: 20120511
  Receipt Date: 20111021
  Transmission Date: 20120825
  Serious: No
  Sender: FDA-Public Use
  Company Number: US-GLAXOSMITHKLINE-A0950337A

PATIENT
  Age: 31 Year
  Sex: Female

DRUGS (1)
  1. TYKERB [Suspect]
     Indication: BREAST CANCER
     Dosage: 1250MG PER DAY
     Route: 048
     Dates: start: 20111008

REACTIONS (12)
  - ABDOMINAL PAIN UPPER [None]
  - DIARRHOEA [None]
  - RASH PAPULAR [None]
  - COAGULATION TIME PROLONGED [None]
  - RASH PUSTULAR [None]
  - GASTROINTESTINAL PAIN [None]
  - INJECTION SITE HAEMORRHAGE [None]
  - STOMATITIS [None]
  - ADVERSE DRUG REACTION [None]
  - DRUG INEFFECTIVE [None]
  - EPISTAXIS [None]
  - ACNE [None]
